FAERS Safety Report 17530011 (Version 1)
Quarter: 2020Q1

REPORT INFORMATION
  Report Type: Spontaneous
  Country: US (occurrence: US)
  Receive Date: 20200311
  Receipt Date: 20200311
  Transmission Date: 20200409
  Serious: No
  Sender: FDA-Public Use
  Company Number: US-BAYER-2020-040077

PATIENT
  Age: 83 Year
  Sex: Female

DRUGS (2)
  1. ASPERCREME [LIDOCAINE] [Concomitant]
     Active Substance: LIDOCAINE
     Dosage: UNK
  2. ALEVE PM [Suspect]
     Active Substance: DIPHENHYDRAMINE HYDROCHLORIDE\NAPROXEN SODIUM
     Indication: PAIN
     Dosage: 1 DF
     Route: 048

REACTIONS (1)
  - Oral discomfort [Recovered/Resolved]
